FAERS Safety Report 9209175 (Version 1)
Quarter: 2013Q2

REPORT INFORMATION
  Report Type: Spontaneous
  Country: US (occurrence: US)
  Receive Date: 20130404
  Receipt Date: 20130404
  Transmission Date: 20140414
  Serious: Yes (Hospitalization)
  Sender: FDA-Public Use
  Company Number: PHEH2013US007529

PATIENT
  Sex: Female

DRUGS (1)
  1. SANDOSTATIN LAR DEPOT [Suspect]
     Dosage: UNK UKN, EVERY 4 WEEKS
     Route: 030

REACTIONS (3)
  - Melanosis coli [Unknown]
  - Gastrointestinal inflammation [Unknown]
  - Diarrhoea [Unknown]
